FAERS Safety Report 6038583-0 (Version None)
Quarter: 2009Q1

REPORT INFORMATION
  Report Type: 
  Country: None (occurrence: None)
  Receive Date: 20090115
  Receipt Date: 20090112
  Transmission Date: 20090719
  Serious: Yes (Other)
  Sender: FDA-Public Use
  Company Number: A0750787A

PATIENT
  Age: 52 Year
  Sex: Female

DRUGS (5)
  1. TYKERB [Suspect]
     Indication: BREAST CANCER
     Dosage: 1250MG PER DAY
     Route: 048
     Dates: start: 20080922, end: 20081201
  2. XELODA [Concomitant]
  3. ACTONEL [Concomitant]
  4. TRIMOPAN [Concomitant]
  5. LORAZEPAM [Concomitant]

REACTIONS (5)
  - DIARRHOEA [None]
  - GASTRIC ULCER [None]
  - MIGRAINE [None]
  - NEOPLASM RECURRENCE [None]
  - PALPITATIONS [None]
